FAERS Safety Report 4499945-6 (Version None)
Quarter: 2004Q4

REPORT INFORMATION
  Report Type: 
  Country: None (occurrence: None)
  Receive Date: 20041112
  Receipt Date: 20041020
  Transmission Date: 20050328
  Serious: Yes (Hospitalization, Other)
  Sender: FDA-Public Use
  Company Number: AT-MERCK-0410AUT00069

PATIENT
  Age: 61 Year
  Sex: Female
  Weight: 121 kg

DRUGS (2)
  1. VIOXX [Suspect]
     Indication: LOCALISED OSTEOARTHRITIS
     Route: 048
     Dates: start: 20020401, end: 20030728
  2. METFORMIN HYDROCHLORIDE [Concomitant]
     Indication: DIABETES MELLITUS NON-INSULIN-DEPENDENT
     Route: 048

REACTIONS (2)
  - CEREBROVASCULAR ACCIDENT [None]
  - VISUAL DISTURBANCE [None]
